FAERS Safety Report 22098922 (Version 1)
Quarter: 2023Q1

REPORT INFORMATION
  Report Type: Spontaneous
  Country: PT (occurrence: PT)
  Receive Date: 20230315
  Receipt Date: 20230315
  Transmission Date: 20230418
  Serious: Yes (Other)
  Sender: FDA-Public Use
  Company Number: PT-GLAXOSMITHKLINE-PT2023GSK037050

PATIENT

DRUGS (4)
  1. FLUTICASONE PROPIONATE [Interacting]
     Active Substance: FLUTICASONE PROPIONATE
     Indication: Asthma
     Dosage: 92 UG (PER DAY)
  2. BUDESONIDE [Interacting]
     Active Substance: BUDESONIDE
     Indication: Asthma
     Dosage: 200 UG (PER DAY)
     Route: 055
  3. COBICISTAT\DARUNAVIR ETHANOLATE [Interacting]
     Active Substance: COBICISTAT\DARUNAVIR ETHANOLATE
     Indication: HIV infection
     Dosage: UNK (800/150 MG/PER DAY)
     Dates: start: 2019
  4. RALTEGRAVIR [Concomitant]
     Active Substance: RALTEGRAVIR
     Indication: HIV infection
     Dosage: 1200 MG (PER DAY)
     Dates: start: 2019

REACTIONS (14)
  - Cushing^s syndrome [Recovering/Resolving]
  - Secondary adrenocortical insufficiency [Recovering/Resolving]
  - Muscular weakness [Recovering/Resolving]
  - Gait disturbance [Recovering/Resolving]
  - Asthenia [Recovering/Resolving]
  - Weight decreased [Recovering/Resolving]
  - Hypertension [Unknown]
  - Cushingoid [Recovering/Resolving]
  - Plethoric face [Recovering/Resolving]
  - Lipohypertrophy [Recovering/Resolving]
  - Abdominal distension [Recovering/Resolving]
  - Hypokalaemia [Recovering/Resolving]
  - Metabolic disorder [Recovering/Resolving]
  - Drug interaction [Unknown]
